FAERS Safety Report 4768975-9 (Version None)
Quarter: 2005Q3

REPORT INFORMATION
  Report Type: 
  Country: None (occurrence: None)
  Receive Date: 20050914
  Receipt Date: 20050906
  Transmission Date: 20060218
  Serious: Yes (Disabling)
  Sender: FDA-Public Use
  Company Number: 200512768GDS

PATIENT
  Age: 57 Year
  Sex: Female
  Weight: 56.56 kg

DRUGS (10)
  1. CIPROFLOXACIN HYDROCHLORIDE [Suspect]
     Indication: POSTOPERATIVE INFECTION
     Dosage: 1000 MG, TOTAL DAILY, INTRAVEN; SEE IMAGE
     Route: 042
     Dates: start: 20050419, end: 20050503
  2. CIPROFLOXACIN HYDROCHLORIDE [Suspect]
     Indication: POSTOPERATIVE INFECTION
     Dosage: 1000 MG, TOTAL DAILY, INTRAVEN; SEE IMAGE
     Route: 042
     Dates: start: 20050504, end: 20050810
  3. CLINDAMYCIN [Suspect]
     Dosage: INTRAVENOUS
     Route: 042
  4. MINOCYCLIN [Concomitant]
  5. EVISTA [Concomitant]
  6. ETALPHA [Concomitant]
  7. INHIBACE [Concomitant]
  8. CLEANE [Concomitant]
  9. FOLIC ACID AND IRON [Concomitant]
  10. EXCEDRIN /BRA/ [Concomitant]

REACTIONS (4)
  - APPLICATION SITE PAIN [None]
  - ARTHRITIS REACTIVE [None]
  - MEDICAL DEVICE COMPLICATION [None]
  - NECK PAIN [None]
